FAERS Safety Report 12429491 (Version 5)
Quarter: 2016Q3

REPORT INFORMATION
  Report Type: Spontaneous
  Country: IT (occurrence: IT)
  Receive Date: 20160602
  Receipt Date: 20160804
  Transmission Date: 20161109
  Serious: Yes (Death, Hospitalization, Other)
  Sender: FDA-Public Use
  Company Number: IT-GILEAD-2016-0215218

PATIENT
  Age: 69 Year
  Sex: Male

DRUGS (4)
  1. MESALAZINE [Concomitant]
     Active Substance: MESALAMINE
  2. LASIX [Concomitant]
     Active Substance: FUROSEMIDE
  3. HARVONI [Suspect]
     Active Substance: LEDIPASVIR\SOFOSBUVIR
     Indication: HEPATITIS C
     Dosage: 1 DF, QD
     Route: 048
     Dates: start: 20151006, end: 20160323
  4. LUVION                             /00252501/ [Concomitant]
     Active Substance: CANRENONE

REACTIONS (2)
  - Off label use [Recovered/Resolved]
  - Gastrointestinal perforation [Fatal]

NARRATIVE: CASE EVENT DATE: 20160323
